FAERS Safety Report 12728600 (Version 2)
Quarter: 2016Q3

REPORT INFORMATION
  Report Type: Report from Study
  Country: GT (occurrence: GT)
  Receive Date: 20160909
  Receipt Date: 20160912
  Transmission Date: 20161109
  Serious: Yes (Death)
  Sender: FDA-Public Use
  Company Number: PHHY2016GT124226

PATIENT
  Age: 43 Year
  Sex: Female

DRUGS (2)
  1. OXICODONA [Concomitant]
     Dosage: 10 MG, BID
     Route: 048
  2. SANDOSTATIN LAR DEPOT [Suspect]
     Active Substance: OCTREOTIDE ACETATE
     Indication: HEPATIC CANCER
     Dosage: UNK
     Route: 058
     Dates: start: 20160802

REACTIONS (4)
  - Malignant neoplasm progression [Fatal]
  - Neoplasm progression [Fatal]
  - Product use issue [Unknown]
  - Weight decreased [Unknown]

NARRATIVE: CASE EVENT DATE: 20160802
